FAERS Safety Report 6904796-6 (Version None)
Quarter: 2010Q3

REPORT INFORMATION
  Report Type: 
  Country: None (occurrence: None)
  Receive Date: 20100804
  Receipt Date: 20090713
  Transmission Date: 20110219
  Serious: Yes (Hospitalization, Other)
  Sender: FDA-Public Use
  Company Number: US-PFIZER INC-2009218809

PATIENT

DRUGS (1)
  1. LYRICA [Suspect]
     Dosage: UNIT DOSE: UNKNOWN;

REACTIONS (1)
  - SUICIDAL IDEATION [None]
